FAERS Safety Report 4433610-6 (Version None)
Quarter: 2004Q3

REPORT INFORMATION
  Report Type: 
  Country: None (occurrence: None)
  Receive Date: 20040825
  Receipt Date: 20040825
  Transmission Date: 20050211
  Serious: Yes (Other)
  Sender: FDA-Public Use
  Company Number: None

PATIENT
  Sex: Female
  Weight: 130.1823 kg

DRUGS (8)
  1. COZAAR [Suspect]
     Indication: ANGIONEUROTIC OEDEMA
     Dosage: ONE DAILY X 1 DOSE
     Dates: start: 20040817
  2. COZAAR [Suspect]
     Indication: ANGIOTENSIN I ABNORMAL
     Dosage: ONE DAILY X 1 DOSE
     Dates: start: 20040817
  3. COZAAR [Suspect]
     Indication: HYPERTENSION
     Dosage: ONE DAILY X 1 DOSE
     Dates: start: 20040817
  4. RANITIDINE [Concomitant]
  5. CLONIDINE HCL [Concomitant]
  6. KLOR [Concomitant]
  7. METOPROLOL [Concomitant]
  8. LASIX [Concomitant]

REACTIONS (1)
  - ANGIONEUROTIC OEDEMA [None]
